FAERS Safety Report 9729047 (Version 1)
Quarter: 2013Q4

REPORT INFORMATION
  Report Type: Spontaneous
  Country: RO (occurrence: RO)
  Receive Date: 20131204
  Receipt Date: 20131204
  Transmission Date: 20140711
  Serious: Yes (Other)
  Sender: FDA-Public Use
  Company Number: PHHY2013RO138035

PATIENT
  Sex: Female

DRUGS (9)
  1. PREDNISONE [Suspect]
     Indication: SYSTEMIC LUPUS ERYTHEMATOSUS
     Dosage: 10 MG, UNK
  2. METHYLPREDNISOLONE [Suspect]
     Indication: SYSTEMIC LUPUS ERYTHEMATOSUS
     Dosage: 1 G, PER DAY
  3. METHYLPREDNISOLONE [Suspect]
     Indication: LUPUS NEPHRITIS
  4. CYCLOPHOSPHAMIDE [Suspect]
     Indication: LUPUS NEPHRITIS
  5. ANTIBIOTICS [Suspect]
  6. AZATHIOPRINE [Concomitant]
     Indication: SYSTEMIC LUPUS ERYTHEMATOSUS
  7. ISONIAZID [Concomitant]
     Indication: DISSEMINATED TUBERCULOSIS
  8. ETHAMBUTOL [Concomitant]
     Indication: DISSEMINATED TUBERCULOSIS
  9. PYRAZINAMIDE [Concomitant]
     Indication: DISSEMINATED TUBERCULOSIS

REACTIONS (8)
  - Systemic lupus erythematosus [Unknown]
  - Pyrexia [Unknown]
  - Arthralgia [Unknown]
  - Inflammation [Unknown]
  - Pancytopenia [Unknown]
  - Hypocomplementaemia [Unknown]
  - Proteinuria [Unknown]
  - Drug ineffective [Unknown]
